FAERS Safety Report 9291625 (Version 2)
Quarter: 2013Q3

REPORT INFORMATION
  Report Type: Spontaneous
  Country: AU (occurrence: AU)
  Receive Date: 20130515
  Receipt Date: 20130702
  Transmission Date: 20140515
  Serious: Yes (Hospitalization, Disabling, Other)
  Sender: FDA-Public Use
  Company Number: AU-MERCK-1301AUS004065

PATIENT
  Age: 11 Year
  Sex: Male
  Weight: 44 kg

DRUGS (7)
  1. ZOLINZA [Suspect]
     Indication: GLIOMA
     Dosage: 300 MG, QD
     Route: 048
     Dates: start: 20120323, end: 20121212
  2. ZOLINZA [Suspect]
     Dosage: 180 M2, QD
     Route: 048
     Dates: start: 20120503, end: 20121212
  3. OMEPRAZOLE [Concomitant]
     Indication: GASTRITIS PROPHYLAXIS
     Dosage: 20 MG, QD
     Route: 048
     Dates: start: 20120420
  4. RESPRIM [Concomitant]
     Indication: ANTIFUNGAL PROPHYLAXIS
     Dosage: 160/800 MG, TID
     Route: 048
     Dates: start: 20120328, end: 20120418
  5. PENTAMIDINE ISETHIONATE [Concomitant]
     Dosage: 200 MG, QM
     Route: 042
     Dates: start: 20120423
  6. RANITIDINE [Concomitant]
     Dosage: 150 MG, BID
     Route: 048
  7. DEXAMETHASONE [Concomitant]
     Dosage: UNK
     Route: 048

REACTIONS (4)
  - Tumour haemorrhage [Not Recovered/Not Resolved]
  - Headache [Not Recovered/Not Resolved]
  - Hemiparesis [Not Recovered/Not Resolved]
  - Vomiting [Not Recovered/Not Resolved]
